FAERS Safety Report 9528375 (Version 1)
Quarter: 2013Q1

REPORT INFORMATION
  Report Type: Spontaneous
  Country: US (occurrence: None)
  Receive Date: 20130314
  Receipt Date: 20130314
  Transmission Date: 20140127
  Serious: No
  Sender: FDA-Public Use
  Company Number: 1301USA011049

PATIENT
  Age: 60 Year
  Sex: Male

DRUGS (3)
  1. VICTRELIS (BOCEPREVIR) CAPSULE, 200 MG [Suspect]
     Indication: CHRONIC HEPATITIS C
     Route: 048
  2. RIBAVIRIN (RIBAVIRIN) TABLET, 200 MG [Suspect]
     Indication: CHRONIC HEPATITIS C
     Route: 048
  3. PEGINTRON [Suspect]
     Indication: CHRONIC HEPATITIS C
     Route: 058

REACTIONS (3)
  - Liver disorder [None]
  - Influenza like illness [None]
  - Nausea [None]
